FAERS Safety Report 4504125-1 (Version None)
Quarter: 2004Q4

REPORT INFORMATION
  Report Type: 
  Country: None (occurrence: None)
  Receive Date: 20041118
  Receipt Date: 20041109
  Transmission Date: 20050328
  Serious: Yes (Hospitalization, Other)
  Sender: FDA-Public Use
  Company Number: BR-ABBOTT-04P-020-0280166-00

PATIENT
  Age: 20 Year
  Sex: Male

DRUGS (4)
  1. CISATRACURIUM (NIMBEX INJECTION) [Suspect]
     Indication: GENERAL ANAESTHESIA
  2. FENTANYL [Suspect]
     Indication: GENERAL ANAESTHESIA
     Route: 042
  3. PROPOFOL [Suspect]
     Indication: GENERAL ANAESTHESIA
     Route: 042
  4. SODIUM CHLORIDE COMPOUND INJECTION [Concomitant]
     Indication: DRUG USE FOR UNKNOWN INDICATION
     Route: 042

REACTIONS (7)
  - CYANOSIS [None]
  - HAEMOPTYSIS [None]
  - OXYGEN SATURATION DECREASED [None]
  - PULMONARY ALVEOLAR HAEMORRHAGE [None]
  - PULMONARY OEDEMA [None]
  - RESPIRATORY DISTRESS [None]
  - TACHYPNOEA [None]
